FAERS Safety Report 5541895-8 (Version None)
Quarter: 2007Q4

REPORT INFORMATION
  Report Type: 
  Country: None (occurrence: None)
  Receive Date: 20071210
  Receipt Date: 20071203
  Transmission Date: 20080405
  Serious: Yes (Death)
  Sender: FDA-Public Use
  Company Number: JP-BRACCO-BRO-012389

PATIENT
  Age: 82 Year
  Sex: Female

DRUGS (2)
  1. IOPAMIDOL [Suspect]
     Indication: HIATUS HERNIA
     Route: 042
     Dates: start: 20071126, end: 20071126
  2. IOPAMIDOL [Suspect]
     Route: 042
     Dates: start: 20071126, end: 20071126

REACTIONS (5)
  - BLOOD PRESSURE DECREASED [None]
  - DEPRESSED LEVEL OF CONSCIOUSNESS [None]
  - HEART RATE INCREASED [None]
  - HYPERHIDROSIS [None]
  - WHEEZING [None]
